FAERS Safety Report 17673258 (Version 2)
Quarter: 2021Q1

REPORT INFORMATION
  Report Type: Spontaneous
  Country: US (occurrence: US)
  Receive Date: 20200416
  Receipt Date: 20210128
  Transmission Date: 20210419
  Serious: Yes (Other)
  Sender: FDA-Public Use
  Company Number: US-ASTRAZENECA-2020SE50693

PATIENT
  Age: 24271 Day
  Sex: Male
  Weight: 72.1 kg

DRUGS (80)
  1. FLUZONE [Concomitant]
     Active Substance: INFLUENZA A VIRUS A/CALIFORNIA/7/2009 X-179A (H1N1) ANTIGEN (FORMALDEHYDE INACTIVATED)\INFLUENZA A VIRUS A/VICTORIA/210/2009 X-187 (H3N2) ANTIGEN (FORMALDEHYDE INACTIVATED)\INFLUENZA B VIRUS B/BRISBANE/60/2008 ANTIGEN (FORMALDEHYDE INACTIVATED)
  2. VOLTAREN [Concomitant]
     Active Substance: DICLOFENAC SODIUM
  3. MUPIROCIN. [Concomitant]
     Active Substance: MUPIROCIN
  4. VIAGRA [Concomitant]
     Active Substance: SILDENAFIL CITRATE
  5. NEXIUM [Suspect]
     Active Substance: ESOMEPRAZOLE MAGNESIUM
     Indication: GASTROOESOPHAGEAL REFLUX DISEASE
     Route: 048
     Dates: start: 200301, end: 201202
  6. DEXILANT [Suspect]
     Active Substance: DEXLANSOPRAZOLE
     Indication: GASTROOESOPHAGEAL REFLUX DISEASE
     Route: 065
     Dates: start: 2012
  7. MORPHINE SULFATE. [Concomitant]
     Active Substance: MORPHINE SULFATE
  8. NITROSTAT [Concomitant]
     Active Substance: NITROGLYCERIN
  9. VENTOLIN HFA [Concomitant]
     Active Substance: ALBUTEROL SULFATE
  10. BREO ELLIPTA [Concomitant]
     Active Substance: FLUTICASONE FUROATE\VILANTEROL TRIFENATATE
  11. DOXEPIN [Concomitant]
     Active Substance: DOXEPIN
  12. CEPHALEXIN. [Concomitant]
     Active Substance: CEPHALEXIN
  13. LEVALBUTEROL HYDROCHLORIDE. [Concomitant]
     Active Substance: LEVALBUTEROL HYDROCHLORIDE
  14. IVERMECTIN. [Concomitant]
     Active Substance: IVERMECTIN
  15. OPANA [Concomitant]
     Active Substance: OXYMORPHONE HYDROCHLORIDE
  16. SHINGLES [Concomitant]
  17. REGLAN [Concomitant]
     Active Substance: METOCLOPRAMIDE HYDROCHLORIDE
  18. PRILOSEC [Suspect]
     Active Substance: OMEPRAZOLE MAGNESIUM
     Indication: GASTROOESOPHAGEAL REFLUX DISEASE
     Route: 048
     Dates: start: 2011, end: 2016
  19. PRILOSEC OTC [Suspect]
     Active Substance: OMEPRAZOLE MAGNESIUM
     Route: 048
     Dates: start: 200301, end: 201202
  20. TAMSULOSIN HYDROCHLORIDE. [Concomitant]
     Active Substance: TAMSULOSIN HYDROCHLORIDE
  21. ATORVASTATIN CALCIUM. [Concomitant]
     Active Substance: ATORVASTATIN CALCIUM
  22. FEXOFENADINE HYDROCHLORIDE. [Concomitant]
     Active Substance: FEXOFENADINE HYDROCHLORIDE
  23. VESICARE [Concomitant]
     Active Substance: SOLIFENACIN SUCCINATE
  24. PRAVASTATIN. [Concomitant]
     Active Substance: PRAVASTATIN
  25. CLOPIDOGREL [Concomitant]
     Active Substance: CLOPIDOGREL BISULFATE
  26. METHYLPREDNISOLONE. [Concomitant]
     Active Substance: METHYLPREDNISOLONE
  27. DEXILANT [Suspect]
     Active Substance: DEXLANSOPRAZOLE
     Indication: GASTROOESOPHAGEAL REFLUX DISEASE
     Route: 065
     Dates: start: 200301, end: 201202
  28. NIFEDIPINE. [Concomitant]
     Active Substance: NIFEDIPINE
  29. ACETYLCYSTERINE [Concomitant]
  30. METAXALONE. [Concomitant]
     Active Substance: METAXALONE
  31. ZOSTAVAX [Concomitant]
     Active Substance: VARICELLA-ZOSTER VIRUS STRAIN OKA/MERCK LIVE ANTIGEN
  32. HYDROXYZINE PAMOATE. [Concomitant]
     Active Substance: HYDROXYZINE PAMOATE
  33. DOXYCYCLINE MONOHYDRATE [Concomitant]
     Active Substance: DOXYCYCLINE
  34. BYDUREON [Concomitant]
     Active Substance: EXENATIDE
  35. HYDROCODONE?ACETAMINOPHEN [Concomitant]
     Active Substance: ACETAMINOPHEN\HYDROCODONE
  36. SPIRIVA RESPIMAT [Concomitant]
     Active Substance: TIOTROPIUM BROMIDE
  37. AMLODIPINE [Concomitant]
     Active Substance: AMLODIPINE BESYLATE
  38. TRIAMCINO ACE [Concomitant]
  39. TAMSULOSIN [Concomitant]
     Active Substance: TAMSULOSIN
  40. ARTHROTEC [Concomitant]
     Active Substance: DICLOFENAC SODIUM\MISOPROSTOL
  41. OXYCODONE [Concomitant]
     Active Substance: OXYCODONE
  42. PLAVIX [Concomitant]
     Active Substance: CLOPIDOGREL BISULFATE
  43. NASONEX [Concomitant]
     Active Substance: MOMETASONE FUROATE
  44. NEBULIZER [Concomitant]
     Active Substance: DEVICE
  45. SIMVASTATIN. [Concomitant]
     Active Substance: SIMVASTATIN
  46. GABAPENTIN. [Concomitant]
     Active Substance: GABAPENTIN
  47. PREVACID [Suspect]
     Active Substance: LANSOPRAZOLE
     Route: 065
     Dates: start: 200301, end: 201202
  48. FEXOFENADINE [Concomitant]
     Active Substance: FEXOFENADINE HYDROCHLORIDE
  49. PERMETHRIN. [Concomitant]
     Active Substance: PERMETHRIN
  50. LOSARTAN POTASSIUM. [Concomitant]
     Active Substance: LOSARTAN POTASSIUM
  51. AMLODIPINE BESYLATE. [Concomitant]
     Active Substance: AMLODIPINE BESYLATE
  52. MECLIZINE [Concomitant]
     Active Substance: MECLIZINE HYDROCHLORIDE
  53. ZINC. [Concomitant]
     Active Substance: ZINC
  54. NEXIUM [Suspect]
     Active Substance: ESOMEPRAZOLE MAGNESIUM
     Indication: GASTROOESOPHAGEAL REFLUX DISEASE
     Route: 048
     Dates: start: 2003, end: 2011
  55. PRILOSEC [Suspect]
     Active Substance: OMEPRAZOLE MAGNESIUM
     Indication: GASTROOESOPHAGEAL REFLUX DISEASE
     Route: 048
     Dates: start: 200301, end: 201202
  56. CLONIDINE. [Concomitant]
     Active Substance: CLONIDINE
  57. IPRATROPI/ALB [Concomitant]
  58. DIAZEPAM. [Concomitant]
     Active Substance: DIAZEPAM
  59. POLYETHYLENE GLYCOL [Concomitant]
     Active Substance: POLYETHYLENE GLYCOLS
  60. SENNA [Concomitant]
     Active Substance: SENNA LEAF\SENNOSIDES\SENNOSIDES A AND B
  61. AVELOX [Concomitant]
     Active Substance: MOXIFLOXACIN HYDROCHLORIDE
  62. ULTRAM [Concomitant]
     Active Substance: TRAMADOL HYDROCHLORIDE
  63. ALBUTEROL. [Concomitant]
     Active Substance: ALBUTEROL
  64. BETA CAROTENE. [Concomitant]
     Active Substance: BETA CAROTENE
  65. ASPIRIN. [Concomitant]
     Active Substance: ASPIRIN
  66. METOPROLOL TARTRATE. [Concomitant]
     Active Substance: METOPROLOL TARTRATE
  67. FINASTERIDE. [Concomitant]
     Active Substance: FINASTERIDE
  68. POTASSIUM CHLORIDE. [Concomitant]
     Active Substance: POTASSIUM CHLORIDE
  69. DOXAZOSIN [Concomitant]
     Active Substance: DOXAZOSIN MESYLATE
  70. FLUOCINOLACE [Concomitant]
  71. HYDRALAZINE [Concomitant]
     Active Substance: HYDRALAZINE HYDROCHLORIDE
  72. PREDNISONE. [Concomitant]
     Active Substance: PREDNISONE
  73. CARVEDILOL. [Concomitant]
     Active Substance: CARVEDILOL
  74. BYSTOLIC [Concomitant]
     Active Substance: NEBIVOLOL HYDROCHLORIDE
  75. OXYCODONE?ACETAMINOPHEN [Concomitant]
     Active Substance: ACETAMINOPHEN\OXYCODONE HYDROCHLORIDE
  76. CODEINE [Concomitant]
     Active Substance: CODEINE
  77. PROTONIX [Suspect]
     Active Substance: PANTOPRAZOLE SODIUM
     Route: 065
     Dates: start: 200301, end: 201202
  78. METOLAZONE. [Concomitant]
     Active Substance: METOLAZONE
  79. LACTULOSE. [Concomitant]
     Active Substance: LACTULOSE
  80. CITRIC ACID [Concomitant]
     Active Substance: CITRIC ACID MONOHYDRATE

REACTIONS (4)
  - Acute kidney injury [Unknown]
  - Nephrogenic anaemia [Unknown]
  - Renal failure [Unknown]
  - Chronic kidney disease [Unknown]

NARRATIVE: CASE EVENT DATE: 20111015
